FAERS Safety Report 9688567 (Version 2)
Quarter: 2013Q4

REPORT INFORMATION
  Report Type: Spontaneous
  Country: US (occurrence: None)
  Receive Date: 20131112
  Receipt Date: 20131115
  Transmission Date: 20140711
  Serious: Yes (Hospitalization, Other)
  Sender: FDA-Public Use
  Company Number: 2013-US-002458

PATIENT
  Age: 60 Year
  Sex: Male
  Weight: 69.8 kg

DRUGS (1)
  1. PRIALT [Suspect]
     Indication: CANCER PAIN
     Dosage: UNK, UG, QH, INTRATHECAL
     Route: 037
     Dates: start: 20131008, end: 20131011

REACTIONS (11)
  - Colon cancer stage IV [None]
  - Bone cancer [None]
  - Concomitant disease progression [None]
  - Cystitis [None]
  - Confusional state [None]
  - Faecaloma [None]
  - Urinary tract infection [None]
  - Cystitis [None]
  - Confusional state [None]
  - Nausea [None]
  - Vomiting [None]
